FAERS Safety Report 7815054-X (Version None)
Quarter: 2011Q4

REPORT INFORMATION
  Report Type: 
  Country: None (occurrence: None)
  Receive Date: 20111014
  Receipt Date: 20110930
  Transmission Date: 20120403
  Serious: Yes (Hospitalization, Other)
  Sender: FDA-Public Use
  Company Number: DE-ELI_LILLY_AND_COMPANY-DE201109008630

PATIENT
  Age: 79 Year
  Sex: Female

DRUGS (4)
  1. FALITHROM [Concomitant]
  2. FORTEO [Suspect]
     Indication: OSTEOPOROSIS
     Dosage: UNK, QD
     Route: 058
     Dates: start: 20110530, end: 20110901
  3. DEKRISTOL [Concomitant]
  4. CALCIUM CARBONATE [Concomitant]

REACTIONS (2)
  - BONE NEOPLASM MALIGNANT [None]
  - BLOOD TEST ABNORMAL [None]
